FAERS Safety Report 6057566-8 (Version None)
Quarter: 2009Q1

REPORT INFORMATION
  Report Type: 
  Country: None (occurrence: None)
  Receive Date: 20090129
  Receipt Date: 20090127
  Transmission Date: 20090719
  Serious: Yes (Life-Threatening)
  Sender: FDA-Public Use
  Company Number: BG-ELI_LILLY_AND_COMPANY-BG200901004909

PATIENT
  Age: 63 Year
  Sex: Male

DRUGS (5)
  1. ALIMTA [Suspect]
     Indication: ADENOCARCINOMA
     Dosage: 500 MG, UNK
     Route: 042
     Dates: start: 20081126, end: 20081126
  2. FOLIC ACID [Concomitant]
     Indication: PROPHYLAXIS
     Dosage: 400 MG, DAILY (1/D)
     Dates: start: 20081118
  3. VITAMIN B-12 [Concomitant]
     Indication: PROPHYLAXIS
     Dosage: 1000 UG, ONCE
     Route: 030
     Dates: start: 20081118, end: 20081118
  4. DEXAMETHASONE [Concomitant]
     Indication: PROPHYLAXIS
     Dosage: 8 MG, 2/D
     Dates: start: 20081125, end: 20081127
  5. ALOXI [Concomitant]
     Indication: ANTIEMETIC SUPPORTIVE CARE
     Dosage: 0.25 MG, ONCE
     Dates: start: 20081126, end: 20081127

REACTIONS (3)
  - ANOREXIA [None]
  - VOMITING [None]
  - WEIGHT DECREASED [None]
